FAERS Safety Report 8530802-1 (Version None)
Quarter: 2012Q3

REPORT INFORMATION
  Report Type: 
  Country: None (occurrence: None)
  Receive Date: 20120723
  Receipt Date: 20120711
  Transmission Date: 20120928
  Serious: Yes (Death, Other)
  Sender: FDA-Public Use
  Company Number: JP-PFIZER INC-2012060836

PATIENT
  Age: 66 Year
  Sex: Male

DRUGS (7)
  1. AMIODARONE HYDROCHLORIDE [Suspect]
     Indication: ATRIAL FIBRILLATION
     Dosage: UNK
     Route: 048
     Dates: start: 20120206, end: 20120215
  2. LASIX [Concomitant]
     Indication: POLYURIA
     Dosage: UNK
  3. AMIODARONE HYDROCHLORIDE [Suspect]
     Dosage: 125 MG, SINGLE
     Route: 041
     Dates: start: 20120130, end: 20120130
  4. AMIODARONE HYDROCHLORIDE [Suspect]
     Dosage: 100 MG, 2X/DAY
     Route: 041
     Dates: start: 20120206, end: 20120215
  5. ASPENON [Concomitant]
     Dosage: UNK
  6. AMIODARONE HYDROCHLORIDE [Suspect]
     Dosage: 750 MG, DAILY
     Route: 041
     Dates: start: 20120130, end: 20120205
  7. HANP [Concomitant]
     Dosage: UNK

REACTIONS (7)
  - ANAEMIA [None]
  - PULMONARY ALVEOLAR HAEMORRHAGE [None]
  - PLATELET COUNT DECREASED [None]
  - HYPOALBUMINAEMIA [None]
  - INTERSTITIAL LUNG DISEASE [None]
  - RESPIRATORY FAILURE [None]
  - ENDOCARDITIS [None]
